FAERS Safety Report 5117260-4 (Version None)
Quarter: 2006Q3

REPORT INFORMATION
  Report Type: 
  Country: None (occurrence: None)
  Receive Date: 20060926
  Receipt Date: 20060815
  Transmission Date: 20061208
  Serious: Yes (Death)
  Sender: FDA-Public Use
  Company Number: 2006100541

PATIENT

DRUGS (1)
  1. VIAGRA [Suspect]

REACTIONS (1)
  - DEATH [None]
